FAERS Safety Report 7602531 (Version 4)
Quarter: 2013Q1

REPORT INFORMATION
  Report Type: Spontaneous
  Country: US (occurrence: US)
  Receive Date: 20100923
  Receipt Date: 20130228
  Transmission Date: 20140127
  Serious: Yes (Hospitalization)
  Sender: FDA-Public Use
  Company Number: US-BAYER-201034247NA

PATIENT
  Age: 12 Year
  Sex: Female
  Weight: 86.17 kg

DRUGS (14)
  1. YAZ [Suspect]
     Indication: ORAL CONTRACEPTION
     Dosage: UNK
     Route: 048
     Dates: start: 2003
  2. YASMIN [Suspect]
     Indication: ORAL CONTRACEPTION
     Dosage: UNK
     Route: 048
     Dates: start: 2003
  3. PREVACID [Concomitant]
  4. COLACE [Concomitant]
  5. URECHOLINE [Concomitant]
  6. PROZAC [Concomitant]
  7. MULTIVITAMIN [Concomitant]
  8. ALBUTEROL [Concomitant]
  9. BISACODYL [Concomitant]
  10. BETHANECHOL [Concomitant]
  11. BACTRIN [Concomitant]
  12. COUMADIN [Concomitant]
  13. CEFTIN [Concomitant]
  14. CATAPRESS [Concomitant]

REACTIONS (4)
  - Myocardial infarction [None]
  - Pulmonary embolism [None]
  - Pain [None]
  - Injury [None]
